FAERS Safety Report 9867471 (Version 1)
Quarter: 2014Q1

REPORT INFORMATION
  Report Type: Spontaneous
  Country: FR (occurrence: FR)
  Receive Date: 20140204
  Receipt Date: 20140204
  Transmission Date: 20141002
  Serious: Yes (Hospitalization, Other)
  Sender: FDA-Public Use
  Company Number: FR-PFIZER INC-2014025291

PATIENT
  Age: 28 Year
  Sex: Female

DRUGS (3)
  1. SALAZOPYRINE [Suspect]
     Indication: RHEUMATOID ARTHRITIS
     Dosage: 1 DF, DAILY
     Route: 048
     Dates: start: 201311
  2. SALAZOPYRINE [Suspect]
     Dosage: 2 DF IN THE MORNING
     Dates: start: 20131113, end: 20131113
  3. AVLOCARDYL [Concomitant]
     Indication: MIGRAINE
     Dosage: UNK

REACTIONS (8)
  - Hypersensitivity [Recovered/Resolved]
  - Urticaria [Recovered/Resolved]
  - Abdominal pain [Recovered/Resolved]
  - Malaise [Recovered/Resolved]
  - Chest discomfort [Unknown]
  - Presyncope [Unknown]
  - Tachycardia [Unknown]
  - Hypotension [Unknown]
